FAERS Safety Report 24548040 (Version 1)
Quarter: 2024Q4

REPORT INFORMATION
  Report Type: Spontaneous
  Country: US (occurrence: US)
  Receive Date: 20241025
  Receipt Date: 20241025
  Transmission Date: 20250114
  Serious: Yes (Other)
  Sender: JOHNSON AND JOHNSON
  Company Number: US-JNJFOC-20241051908

PATIENT
  Age: 36 Year
  Sex: Male

DRUGS (11)
  1. STELARA [Suspect]
     Active Substance: USTEKINUMAB
     Indication: Colitis ulcerative
     Route: 058
     Dates: start: 20211215
  2. STELARA [Suspect]
     Active Substance: USTEKINUMAB
  3. LEVOTHYROXINE [Concomitant]
     Active Substance: LEVOTHYROXINE
     Indication: Product used for unknown indication
  4. WAKIX [Concomitant]
     Active Substance: PITOLISANT HYDROCHLORIDE
     Indication: Product used for unknown indication
  5. CLOMIPRAMINE [Concomitant]
     Active Substance: CLOMIPRAMINE
     Indication: Product used for unknown indication
  6. METHOCARBAMOL [Concomitant]
     Active Substance: METHOCARBAMOL
  7. PAROXETINE HYDROCHLORIDE [Concomitant]
     Active Substance: PAROXETINE HYDROCHLORIDE
  8. ATENOLOL [Concomitant]
     Active Substance: ATENOLOL
  9. BUPROPION [Concomitant]
     Active Substance: BUPROPION
  10. BETAMETHASONE CLOTRIMAZOLE [Concomitant]
     Active Substance: BETAMETHASONE DIPROPIONATE\CLOTRIMAZOLE
  11. ALBUTEROL [Concomitant]
     Active Substance: ALBUTEROL

REACTIONS (2)
  - Colitis ulcerative [Not Recovered/Not Resolved]
  - Fungal infection [Not Recovered/Not Resolved]
